FAERS Safety Report 24653465 (Version 1)
Quarter: 2024Q4

REPORT INFORMATION
  Report Type: Spontaneous
  Country: US (occurrence: US)
  Receive Date: 20241122
  Receipt Date: 20241122
  Transmission Date: 20250115
  Serious: No
  Sender: NOVO NORDISK
  Company Number: US-NOVOPROD-1069215

PATIENT
  Sex: Female

DRUGS (1)
  1. TRESIBA [Suspect]
     Active Substance: INSULIN DEGLUDEC
     Indication: Type 2 diabetes mellitus
     Dosage: 10 IU, QD(IN THE AM)
     Route: 058

REACTIONS (4)
  - Hypoacusis [Unknown]
  - Blood glucose increased [Not Recovered/Not Resolved]
  - Device leakage [Unknown]
  - Incorrect dose administered by device [Unknown]
